FAERS Safety Report 24095063 (Version 1)
Quarter: 2024Q3

REPORT INFORMATION
  Report Type: Spontaneous
  Country: US (occurrence: US)
  Receive Date: 20240716
  Receipt Date: 20240716
  Transmission Date: 20241017
  Serious: No
  Sender: ROCHE
  Company Number: US-ROCHE-10000024788

PATIENT
  Age: 37 Year
  Sex: Female
  Weight: 90.72 kg

DRUGS (7)
  1. OCREVUS [Suspect]
     Active Substance: OCRELIZUMAB
     Indication: Relapsing-remitting multiple sclerosis
     Route: 042
     Dates: start: 201908
  2. BENADRYL [Suspect]
     Active Substance: DIPHENHYDRAMINE HYDROCHLORIDE
     Indication: Product used for unknown indication
     Route: 042
     Dates: start: 201908
  3. VITAMIN D3 [Concomitant]
     Active Substance: CHOLECALCIFEROL
     Indication: Vitamin D decreased
     Dosage: TAKES IT MONDAY THROUGH FRIDAY.
     Route: 048
     Dates: start: 2019
  4. IRON [Concomitant]
     Active Substance: IRON
     Indication: Anaemia
     Route: 048
     Dates: start: 2020
  5. VITAMIN B [Concomitant]
     Active Substance: VITAMIN B
     Indication: Sleeve gastrectomy
     Dosage: TAKES IN THE MORING AND LATER IN THE DAY.
     Route: 048
     Dates: start: 2020
  6. METFORMIN [Concomitant]
     Active Substance: METFORMIN HYDROCHLORIDE
     Indication: Type 2 diabetes mellitus
     Route: 048
     Dates: start: 2012, end: 2020
  7. ARMODAFINIL [Concomitant]
     Active Substance: ARMODAFINIL
     Indication: Fatigue
     Route: 048
     Dates: start: 20231110

REACTIONS (8)
  - Therapeutic response shortened [Not Recovered/Not Resolved]
  - Fatigue [Not Recovered/Not Resolved]
  - Somnolence [Recovered/Resolved]
  - Infusion related reaction [Recovered/Resolved]
  - Anaemia [Recovered/Resolved]
  - Blood iron decreased [Recovered/Resolved]
  - Glucose tolerance impaired [Not Recovered/Not Resolved]
  - Off label use [Unknown]

NARRATIVE: CASE EVENT DATE: 20190801
